FAERS Safety Report 6326815-0 (Version None)
Quarter: 2009Q3

REPORT INFORMATION
  Report Type: 
  Country: None (occurrence: None)
  Receive Date: 20090825
  Receipt Date: 20090810
  Transmission Date: 20100115
  Serious: Yes (Hospitalization)
  Sender: FDA-Public Use
  Company Number: PL-SOLVAY-00209004552

PATIENT
  Age: 18 Year
  Sex: Male

DRUGS (7)
  1. PERINDOPRIL [Suspect]
     Indication: HYPERTENSION
     Dosage: DAILY DOSE: 4 MILLIGRAM(S)
     Route: 065
  2. NITRENDIPINE [Concomitant]
     Indication: HYPERTENSION
     Dosage: DAILY DOSE: 20 MILLIGRAM(S)
     Route: 065
  3. NITRENDIPINE [Concomitant]
     Dosage: DAILY DOSE: 40 MILLIGRAM(S)
     Route: 065
  4. LISINOPRIL [Suspect]
     Indication: HYPERTENSION
     Dosage: DAILY DOSE: 10 MILLIGRAM(S)
     Route: 065
  5. PRAZSOIN HCL [Concomitant]
     Indication: HYPERTENSION
     Dosage: DAILY DOSE: 6 MILLIGRAM(S)
     Route: 065
  6. PRAZSOIN HCL [Concomitant]
     Dosage: DAILY DOSE: 15 MILLIGRAM(S)
     Route: 065
  7. METOPROLOL [Concomitant]
     Indication: HYPERTENSION
     Dosage: DAILY DOSE: 200 MILLIGRAM(S)
     Route: 065

REACTIONS (3)
  - RENAL ANEURYSM [None]
  - RENAL ARTERY OCCLUSION [None]
  - RENAL FAILURE [None]
